FAERS Safety Report 9789143 (Version 1)
Quarter: 2013Q4

REPORT INFORMATION
  Report Type: Spontaneous
  Country: US (occurrence: US)
  Receive Date: 20131230
  Receipt Date: 20131230
  Transmission Date: 20140711
  Serious: Yes (Hospitalization)
  Sender: FDA-Public Use
  Company Number: US-B.I. PHARMACEUTICALS,INC./RIDGEFIELD-2013-BI-43785BP

PATIENT
  Sex: Male
  Weight: 58 kg

DRUGS (10)
  1. SPIRIVA [Suspect]
     Indication: CHRONIC OBSTRUCTIVE PULMONARY DISEASE
     Dosage: 18 MCG
     Route: 055
     Dates: start: 2005
  2. VITAMIN D [Concomitant]
     Dosage: 2000 MG
     Route: 048
  3. ESCITALOPRAM [Concomitant]
     Indication: DEPRESSION
     Dosage: 20 MG
     Route: 048
  4. MUCINEX [Concomitant]
     Indication: NASAL CONGESTION
     Route: 048
  5. ALBUTEROL NEBULIZER [Concomitant]
     Indication: CHRONIC OBSTRUCTIVE PULMONARY DISEASE
     Route: 055
  6. TRAZADONE [Concomitant]
     Indication: SLEEP DISORDER
     Dosage: 50 MG
     Route: 048
  7. BYSTOLIC [Concomitant]
     Indication: HYPERTENSION
     Dosage: 2.5 MG
     Route: 048
  8. SYMBICORT [Concomitant]
     Indication: CHRONIC OBSTRUCTIVE PULMONARY DISEASE
     Route: 055
  9. SIMVASTATIN [Concomitant]
     Indication: BLOOD CHOLESTEROL INCREASED
     Dosage: 40 MG
     Route: 048
  10. ALLEGRA [Concomitant]
     Indication: SINUS DISORDER
     Dosage: 180 MG
     Route: 048

REACTIONS (3)
  - Aortic aneurysm [Not Recovered/Not Resolved]
  - Fall [Recovered/Resolved]
  - Wrist fracture [Not Recovered/Not Resolved]
